FAERS Safety Report 11746964 (Version 3)
Quarter: 2016Q1

REPORT INFORMATION
  Report Type: Report from Study
  Country: US (occurrence: US)
  Receive Date: 20151117
  Receipt Date: 20160119
  Transmission Date: 20160525
  Serious: Yes (Death, Hospitalization, Other)
  Sender: FDA-Public Use
  Company Number: US-GILEAD-2015-0182561

PATIENT
  Age: 55 Year
  Sex: Female

DRUGS (30)
  1. XANAX [Concomitant]
     Active Substance: ALPRAZOLAM
  2. FERROUS SULFATE [Concomitant]
     Active Substance: FERROUS SULFATE\FERROUS SULFATE, DRIED
  3. SINGULAIR [Concomitant]
     Active Substance: MONTELUKAST SODIUM
  4. ADCIRCA [Suspect]
     Active Substance: TADALAFIL
     Indication: PRODUCT USED FOR UNKNOWN INDICATION
     Route: 065
  5. GABAPENTIN. [Suspect]
     Active Substance: GABAPENTIN
     Indication: PAIN IN EXTREMITY
     Route: 065
  6. NYSTATIN. [Concomitant]
     Active Substance: NYSTATIN
  7. MIDODRINE [Concomitant]
     Active Substance: MIDODRINE
  8. ZOFRAN [Concomitant]
     Active Substance: ONDANSETRON HYDROCHLORIDE
  9. ADVAIR HFA [Concomitant]
     Active Substance: FLUTICASONE PROPIONATE\SALMETEROL XINAFOATE
  10. LASIX [Concomitant]
     Active Substance: FUROSEMIDE
  11. BIAXIN [Concomitant]
     Active Substance: CLARITHROMYCIN
  12. METOLAZONE. [Concomitant]
     Active Substance: METOLAZONE
  13. PROAIR HFA [Concomitant]
     Active Substance: ALBUTEROL SULFATE
  14. MELATONIN [Concomitant]
     Active Substance: MELATONIN
  15. DOPAMINE [Concomitant]
     Active Substance: DOPAMINE\DOPAMINE HYDROCHLORIDE
  16. DIAMOX                             /00016901/ [Concomitant]
     Active Substance: ACETAZOLAMIDE
  17. LEVBID [Concomitant]
     Active Substance: HYOSCYAMINE SULFATE
  18. FLONASE                            /00908302/ [Concomitant]
     Active Substance: MOMETASONE FUROATE
  19. PRILOSEC [Concomitant]
     Active Substance: OMEPRAZOLE MAGNESIUM
  20. CLARITIN [Concomitant]
     Active Substance: LORATADINE
  21. MAGNESIUM [Concomitant]
     Active Substance: MAGNESIUM
  22. ALDACTONE [Concomitant]
     Active Substance: SPIRONOLACTONE
  23. SYNTHROID [Concomitant]
     Active Substance: LEVOTHYROXINE SODIUM
  24. REMODULIN [Suspect]
     Active Substance: TREPROSTINIL
     Indication: PRODUCT USED FOR UNKNOWN INDICATION
     Route: 065
  25. COMPAZINE [Concomitant]
     Active Substance: PROCHLORPERAZINE MALEATE
  26. TUMS                               /00193601/ [Concomitant]
     Active Substance: CALCIUM CARBONATE\MAGNESIUM CARBONATE\MAGNESIUM TRISILICATE
  27. TOPROL XL [Concomitant]
     Active Substance: METOPROLOL SUCCINATE
  28. AMBRISENTAN [Suspect]
     Active Substance: AMBRISENTAN
     Indication: PULMONARY ARTERIAL HYPERTENSION
     Dosage: 10 MG, QD
     Route: 065
     Dates: start: 20120406, end: 20151224
  29. TYLENOL [Concomitant]
     Active Substance: ACETAMINOPHEN
  30. POTASSIUM [Concomitant]
     Active Substance: POTASSIUM

REACTIONS (6)
  - Depressed level of consciousness [Unknown]
  - Right ventricular failure [Fatal]
  - Renal impairment [Unknown]
  - Pain in extremity [Unknown]
  - Pulmonary arterial hypertension [Fatal]
  - Anticonvulsant drug level increased [Unknown]
